FAERS Safety Report 14732420 (Version 2)
Quarter: 2018Q2

REPORT INFORMATION
  Report Type: Spontaneous
  Country: PL (occurrence: PL)
  Receive Date: 20180409
  Receipt Date: 20180419
  Transmission Date: 20180711
  Serious: Yes (Other)
  Sender: FDA-Public Use
  Company Number: PL-ROCHE-2098554

PATIENT
  Age: 74 Year
  Sex: Female
  Weight: 89 kg

DRUGS (5)
  1. HERCEPTIN [Suspect]
     Active Substance: TRASTUZUMAB
     Dosage: NEXT ADMINISTRATIONS
     Route: 042
     Dates: start: 201612
  2. PERJETA [Suspect]
     Active Substance: PERTUZUMAB
     Dosage: NEXT ADMINISTRATIONS
     Route: 042
     Dates: start: 201612
  3. DOCETAXEL. [Concomitant]
     Active Substance: DOCETAXEL
     Indication: BREAST CANCER
     Route: 042
     Dates: start: 20161125, end: 20170321
  4. PERJETA [Suspect]
     Active Substance: PERTUZUMAB
     Indication: BREAST CANCER
     Dosage: 6 DOSES, FIRST ADMINISTRATION
     Route: 042
     Dates: start: 20161125
  5. HERCEPTIN [Suspect]
     Active Substance: TRASTUZUMAB
     Indication: BREAST CANCER
     Dosage: 6 DOSES, FIRST ADMINISTRATION
     Route: 042
     Dates: start: 20161125

REACTIONS (3)
  - Staphylococcal sepsis [Recovered/Resolved]
  - Thrombosis [Recovered/Resolved]
  - Febrile neutropenia [Recovered/Resolved]

NARRATIVE: CASE EVENT DATE: 20170321
